FAERS Safety Report 4448558-0 (Version None)
Quarter: 2004Q3

REPORT INFORMATION
  Report Type: 
  Country: None (occurrence: None)
  Receive Date: 20040909
  Receipt Date: 20040819
  Transmission Date: 20050211
  Serious: Yes (Other)
  Sender: FDA-Public Use
  Company Number: GBS040815452

PATIENT
  Sex: Male

DRUGS (1)
  1. OLANZAPINE [Suspect]

REACTIONS (1)
  - CONGESTIVE CARDIOMYOPATHY [None]
